FAERS Safety Report 22594423 (Version 1)
Quarter: 2023Q2

REPORT INFORMATION
  Report Type: Report from Study
  Country: US (occurrence: US)
  Receive Date: 20230613
  Receipt Date: 20230613
  Transmission Date: 20230721
  Serious: Yes (Other)
  Sender: FDA-Public Use
  Company Number: US-ABBVIE-5284185

PATIENT
  Sex: Female

DRUGS (1)
  1. HUMIRA [Suspect]
     Active Substance: ADALIMUMAB
     Indication: Crohn^s disease
     Dosage: CITRATE FREE
     Route: 058

REACTIONS (9)
  - Panic attack [Unknown]
  - Respiratory disorder [Unknown]
  - Fatigue [Unknown]
  - Post-traumatic stress disorder [Unknown]
  - Diarrhoea [Unknown]
  - Somnolence [Unknown]
  - Suicidal behaviour [Unknown]
  - Glucose tolerance impaired [Unknown]
  - Mycotic allergy [Unknown]
